FAERS Safety Report 19647635 (Version 1)
Quarter: 2021Q3

REPORT INFORMATION
  Report Type: Report from Study
  Country: IT (occurrence: IT)
  Receive Date: 20210802
  Receipt Date: 20210802
  Transmission Date: 20211014
  Serious: Yes (Hospitalization)
  Sender: FDA-Public Use
  Company Number: IT-PFIZER INC-202100934208

PATIENT
  Age: 61 Year
  Sex: Male
  Weight: 60 kg

DRUGS (8)
  1. AVELUMAB [Suspect]
     Active Substance: AVELUMAB
     Dosage: 800 MG, CYCLIC (EVERY 2 WEEKS)
     Route: 042
     Dates: start: 20210218, end: 20210709
  2. AXITINIB [Suspect]
     Active Substance: AXITINIB
     Dosage: 5 MG, DAILY
     Route: 048
     Dates: start: 20210218, end: 20210722
  3. ENALAPRIL [Concomitant]
     Active Substance: ENALAPRIL
     Indication: HYPERTENSION
     Dosage: 0.5 DF, DAILY
     Route: 048
     Dates: start: 20210218
  4. TARDYFER [Concomitant]
     Active Substance: FERROUS SULFATE
     Indication: ANAEMIA
     Dosage: 80 MG, 1X/DAY
     Route: 048
     Dates: start: 20210218
  5. FOLINA [FOLIC ACID] [Concomitant]
     Active Substance: FOLIC ACID
     Indication: ANAEMIA
     Dosage: 5 MG, 1X/DAY
     Route: 048
     Dates: start: 20210318
  6. CARDURA [Concomitant]
     Active Substance: DOXAZOSIN MESYLATE
     Indication: HYPERTENSION
     Dosage: 2 MG, 1X/DAY
     Route: 048
     Dates: start: 20210401
  7. ALLOPURINOLO [Concomitant]
     Active Substance: ALLOPURINOL
     Indication: HYPERURICAEMIA
     Dosage: 100 MG, 1X/DAY
     Route: 048
     Dates: start: 20210514
  8. ESOMEPRAZOL [ESOMEPRAZOLE] [Concomitant]
     Active Substance: ESOMEPRAZOLE
     Indication: PROPHYLAXIS
     Dosage: 20 MG, 1X/DAY
     Route: 048
     Dates: start: 20210218

REACTIONS (1)
  - Acute kidney injury [Recovered/Resolved]

NARRATIVE: CASE EVENT DATE: 20210713
